FAERS Safety Report 8622650-9 (Version None)
Quarter: 2012Q3

REPORT INFORMATION
  Report Type: 
  Country: None (occurrence: None)
  Receive Date: 20120827
  Receipt Date: 20120816
  Transmission Date: 20120928
  Serious: Yes (Other)
  Sender: FDA-Public Use
  Company Number: US-JNJFOC-20120809961

PATIENT
  Sex: Female
  Weight: 81.65 kg

DRUGS (2)
  1. REMICADE [Suspect]
     Indication: HIDRADENITIS
     Route: 042
     Dates: start: 20120701, end: 20120801
  2. ^INHALERS FOR ASTHMA^ [Concomitant]
     Indication: ASTHMA
     Route: 045

REACTIONS (6)
  - URTICARIA [None]
  - DRUG INEFFECTIVE [None]
  - ACNE [None]
  - MENOMETRORRHAGIA [None]
  - SUBCUTANEOUS ABSCESS [None]
  - MENSTRUAL DISORDER [None]
